FAERS Safety Report 9677017 (Version 1)
Quarter: 2013Q4

REPORT INFORMATION
  Report Type: Spontaneous
  Country: DE (occurrence: DE)
  Receive Date: 20131108
  Receipt Date: 20131108
  Transmission Date: 20140711
  Serious: Yes (Congenital Anomaly)
  Sender: FDA-Public Use
  Company Number: DE-BIOGENIDEC-2013BI106563

PATIENT
  Age: 0 Year
  Sex: 0

DRUGS (1)
  1. AVONEX [Suspect]
     Indication: MATERNAL EXPOSURE TIMING UNSPECIFIED
     Route: 064
     Dates: start: 20090101

REACTIONS (1)
  - Vocal cord paresis [Unknown]
